FAERS Safety Report 4414396-8 (Version None)
Quarter: 2004Q3

REPORT INFORMATION
  Report Type: 
  Country: None (occurrence: None)
  Receive Date: 20040803
  Receipt Date: 20030806
  Transmission Date: 20050211
  Serious: Yes (Hospitalization)
  Sender: FDA-Public Use
  Company Number: IE-MERCK-0308GBR00039

PATIENT
  Age: 72 Year
  Sex: Female

DRUGS (2)
  1. FOSAMAX [Suspect]
     Indication: OSTEOPOROSIS PROPHYLAXIS
     Route: 048
     Dates: end: 20030501
  2. CORTICOSTEROIDS (UNSPECIFIED) [Concomitant]
     Indication: ARTHRITIS
     Route: 065

REACTIONS (4)
  - ANAEMIA [None]
  - OESOPHAGITIS [None]
  - PYREXIA [None]
  - UPPER GASTROINTESTINAL HAEMORRHAGE [None]
